FAERS Safety Report 7083140-0 (Version None)
Quarter: 2010Q4

REPORT INFORMATION
  Report Type: 
  Country: None (occurrence: None)
  Receive Date: 20101027
  Receipt Date: 20101014
  Transmission Date: 20110411
  Serious: Yes (Death, Hospitalization, Other)
  Sender: FDA-Public Use
  Company Number: BR-001295

PATIENT
  Sex: Male
  Weight: 20 kg

DRUGS (2)
  1. NAGLAZYME [Suspect]
     Indication: MUCOPOLYSACCHARIDOSIS VI
     Dosage: 20 MG 1X/WEEK INTRAVENOUS DRIP
     Route: 041
     Dates: start: 20081105
  2. AMOXICILLIN [Concomitant]

REACTIONS (2)
  - PNEUMONIA [None]
  - SEPSIS [None]
